FAERS Safety Report 16647307 (Version 4)
Quarter: 2019Q4

REPORT INFORMATION
  Report Type: Spontaneous
  Country: US (occurrence: US)
  Receive Date: 20190730
  Receipt Date: 20191205
  Transmission Date: 20200122
  Serious: No
  Sender: FDA-Public Use
  Company Number: US-PFIZER INC-2018135547

PATIENT
  Age: 71 Year
  Sex: Female
  Weight: 73 kg

DRUGS (5)
  1. LYRICA [Suspect]
     Active Substance: PREGABALIN
     Indication: CUTANEOUS LUPUS ERYTHEMATOSUS
     Dosage: 100 MG, 3X/DAY, (TAKE 1 CAPSULE (100 MG TOTAL) BY MOUTH 3 (THREE) TIMES A DAY)
     Route: 048
  2. LYRICA [Suspect]
     Active Substance: PREGABALIN
     Indication: NERVE INJURY
  3. LYRICA [Suspect]
     Active Substance: PREGABALIN
     Indication: POLYMYALGIA RHEUMATICA
  4. LYRICA [Suspect]
     Active Substance: PREGABALIN
     Indication: NEUROPATHY PERIPHERAL
  5. LYRICA [Suspect]
     Active Substance: PREGABALIN
     Indication: FIBROMYALGIA

REACTIONS (3)
  - Influenza [Unknown]
  - Intentional product misuse [Unknown]
  - Diarrhoea [Unknown]
